FAERS Safety Report 9109460 (Version 2)
Quarter: 2013Q1

REPORT INFORMATION
  Report Type: Report from Study
  Country: US (occurrence: US)
  Receive Date: 20130222
  Receipt Date: 20130312
  Transmission Date: 20140127
  Serious: Yes (Hospitalization)
  Sender: FDA-Public Use
  Company Number: US-JNJFOC-20130211026

PATIENT
  Age: 19 Year
  Sex: Female
  Weight: 70.7 kg

DRUGS (20)
  1. REMICADE [Suspect]
     Indication: INFLAMMATORY BOWEL DISEASE
     Dosage: HAD NOT RECEIVED INFLIXIMAB FOR 45 MONTHS
     Route: 042
     Dates: start: 20090416
  2. HUMIRA [Suspect]
     Indication: INFLAMMATORY BOWEL DISEASE
     Dates: start: 20100114
  3. PREDNISONE [Suspect]
     Indication: INFLAMMATORY BOWEL DISEASE
  4. 5-ASA [Concomitant]
     Route: 048
  5. BUDESONIDE [Concomitant]
  6. THALIDOMIDE [Concomitant]
  7. ANITBIOTICS [Concomitant]
     Indication: INFLAMMATORY BOWEL DISEASE
  8. ACETAMINOPHEN [Concomitant]
  9. HYOSCYAMINE [Concomitant]
  10. LANSOPRAZOLE [Concomitant]
  11. MULTIPLE VITAMIN [Concomitant]
  12. AMITRIPTYLINE [Concomitant]
  13. VITAMIN D3 [Concomitant]
  14. MEDROXYPROGESTERONE ACETATE [Concomitant]
  15. PROCHLORPERAZINE [Concomitant]
  16. DIPHENHYDRAMINE [Concomitant]
  17. DEXAMETHASONE [Concomitant]
  18. CEPHALEXIN [Concomitant]
  19. LEVAQUIN [Concomitant]
  20. NORCO [Concomitant]

REACTIONS (1)
  - Staphylococcal infection [Recovered/Resolved]
